FAERS Safety Report 7795295-0 (Version None)
Quarter: 2011Q3

REPORT INFORMATION
  Report Type: 
  Country: None (occurrence: None)
  Receive Date: 20110930
  Receipt Date: 20110922
  Transmission Date: 20111222
  Serious: Yes (Other)
  Sender: FDA-Public Use
  Company Number: 1053327

PATIENT
  Age: 74 Year
  Sex: Female

DRUGS (9)
  1. LANSOPRAZOLE [Concomitant]
  2. (DELACORTENE) [Concomitant]
  3. BACTRIM [Suspect]
     Indication: ACUTE INTERSTITIAL PNEUMONITIS
     Dosage: 2 DF DOSAGE FORM, ORAL
     Route: 048
     Dates: start: 20110812, end: 20110826
  4. INSULIN [Concomitant]
  5. LASIX [Concomitant]
  6. MEROPENEM [Suspect]
     Indication: ACUTE INTERSTITIAL PNEUMONITIS
     Dosage: 3 DF DOSAGE FORM, INTRAVENOUS
     Route: 042
     Dates: start: 20110818, end: 20110829
  7. LEVOFLOXACIN [Suspect]
     Indication: ACUTE INTERSTITIAL PNEUMONITIS
     Dosage: 500 MG MILLIGRAM(S)
     Dates: start: 20110804, end: 20110829
  8. ENOXAPARIN SODIUM [Concomitant]
  9. (LUVION /00252501/) [Concomitant]

REACTIONS (7)
  - ALANINE AMINOTRANSFERASE INCREASED [None]
  - HYPERKALAEMIA [None]
  - GAMMA-GLUTAMYLTRANSFERASE INCREASED [None]
  - TRANSAMINASES INCREASED [None]
  - ASPARTATE AMINOTRANSFERASE INCREASED [None]
  - BLOOD LACTATE DEHYDROGENASE INCREASED [None]
  - NEUTROPENIA [None]
